FAERS Safety Report 7584750-4 (Version None)
Quarter: 2011Q2

REPORT INFORMATION
  Report Type: 
  Country: None (occurrence: None)
  Receive Date: 20110630
  Receipt Date: 20110622
  Transmission Date: 20111010
  Serious: Yes (Other)
  Sender: FDA-Public Use
  Company Number: PHHY2011US34498

PATIENT
  Sex: Female

DRUGS (5)
  1. TOPAMAX [Concomitant]
     Indication: MIGRAINE
     Dosage: 100 MG, QD
  2. ABILIFY [Concomitant]
     Indication: BIPOLAR DISORDER
     Dosage: 60 MG, QD
  3. PROZAC [Concomitant]
     Indication: BIPOLAR DISORDER
     Dosage: 100 MG, QD
  4. GILENYA [Suspect]
     Indication: RELAPSING-REMITTING MULTIPLE SCLEROSIS
     Dosage: 0.5 MG, QD
     Route: 048
     Dates: start: 20101208
  5. VESICARE [Concomitant]
     Indication: NEUROGENIC BLADDER
     Dosage: UNK

REACTIONS (1)
  - RENAL CANCER [None]
